FAERS Safety Report 25078443 (Version 3)
Quarter: 2025Q4

REPORT INFORMATION
  Report Type: Spontaneous
  Country: US (occurrence: US)
  Receive Date: 20250314
  Receipt Date: 20251110
  Transmission Date: 20260118
  Serious: Yes (Hospitalization, Other)
  Sender: SANOFI AVENTIS
  Company Number: US-SA-2025SA075329

PATIENT
  Age: 75 Year
  Sex: Male

DRUGS (14)
  1. DUPIXENT [Suspect]
     Active Substance: DUPILUMAB
     Indication: Chronic obstructive pulmonary disease
     Dosage: 300 MG, QOW
     Route: 058
     Dates: start: 202412
  2. ALBUTEROL SULFATE [Concomitant]
     Active Substance: ALBUTEROL SULFATE
  3. CARVEDILOL [Concomitant]
     Active Substance: CARVEDILOL
  4. ELIQUIS [Concomitant]
     Active Substance: APIXABAN
  5. FLUTICASONE [Concomitant]
     Active Substance: FLUTICASONE
  6. FUROSEMIDE [Concomitant]
     Active Substance: FUROSEMIDE
  7. MUCINEX [Concomitant]
     Active Substance: GUAIFENESIN
  8. ROFLUMILAST [Concomitant]
     Active Substance: ROFLUMILAST
  9. ROSUVASTATIN [Concomitant]
     Active Substance: ROSUVASTATIN
  10. SPIRONOLACTONE [Concomitant]
     Active Substance: SPIRONOLACTONE
  11. TAMSULOSIN [Concomitant]
     Active Substance: TAMSULOSIN
  12. TRELEGY ELLIPTA [Concomitant]
     Active Substance: FLUTICASONE FUROATE\UMECLIDINIUM BROMIDE\VILANTEROL TRIFENATATE
  13. VITAMIN D3 [Concomitant]
     Active Substance: CHOLECALCIFEROL
  14. VITAMIN C [Concomitant]
     Active Substance: ASCORBIC ACID

REACTIONS (3)
  - Pneumonia [Recovered/Resolved]
  - Night sweats [Recovered/Resolved]
  - Chills [Recovered/Resolved]

NARRATIVE: CASE EVENT DATE: 20250301
